FAERS Safety Report 7334352-X (Version None)
Quarter: 2011Q1

REPORT INFORMATION
  Report Type: 
  Country: None (occurrence: None)
  Receive Date: 20110307
  Receipt Date: 20110112
  Transmission Date: 20110831
  Serious: No
  Sender: FDA-Public Use
  Company Number: US-KINGPHARMUSA00001-K201100073

PATIENT
  Age: 39 Year
  Sex: Male
  Weight: 83.9 kg

DRUGS (4)
  1. SOMA [Concomitant]
     Indication: BACK PAIN
     Dosage: UNK
     Route: 048
  2. OPANA [Concomitant]
     Indication: BREAKTHROUGH PAIN
     Dosage: UNK
     Route: 048
  3. FENTANYL [Concomitant]
     Dosage: 150 MG, QOD
     Route: 037
  4. EMBEDA [Suspect]
     Indication: BACK PAIN
     Dosage: 100 MG, QD
     Route: 048
     Dates: start: 20110103

REACTIONS (2)
  - ABNORMAL FAECES [None]
  - DRUG INEFFECTIVE [None]
